FAERS Safety Report 7633181-7 (Version None)
Quarter: 2011Q3

REPORT INFORMATION
  Report Type: 
  Country: None (occurrence: None)
  Receive Date: 20110725
  Receipt Date: 20110720
  Transmission Date: 20111222
  Serious: Yes (Other)
  Sender: FDA-Public Use
  Company Number: GB-PFIZER INC-2011164619

PATIENT
  Age: 48 Year
  Sex: Female

DRUGS (1)
  1. EFFEXOR XR [Suspect]
     Indication: ANXIETY DISORDER
     Dosage: 150MG DAILY

REACTIONS (2)
  - GASTRIC BANDING [None]
  - REGURGITATION [None]
